FAERS Safety Report 16853261 (Version 1)
Quarter: 2019Q3

REPORT INFORMATION
  Report Type: Report from Study
  Country: JP (occurrence: JP)
  Receive Date: 20190925
  Receipt Date: 20190925
  Transmission Date: 20191005
  Serious: Yes (Death)
  Sender: FDA-Public Use
  Company Number: JP-INCYTE CORPORATION-2017IN001299

PATIENT

DRUGS (17)
  1. RED CELLS CONCENTRATES-LEUKOCYTES REDUCED [Concomitant]
     Active Substance: HUMAN RED BLOOD CELL
     Indication: MYELOFIBROSIS
     Dosage: 240 ML, UNK
     Route: 042
     Dates: end: 20161026
  2. HYDREA [Concomitant]
     Active Substance: HYDROXYUREA
     Dosage: 3000 MG, UNK
     Dates: start: 20161027, end: 20161103
  3. NESP [Concomitant]
     Active Substance: DARBEPOETIN ALFA
     Indication: PRODUCT USED FOR UNKNOWN INDICATION
     Dosage: 0.5 ML, UNK
     Route: 042
     Dates: end: 20161011
  4. JAKAVI [Suspect]
     Active Substance: RUXOLITINIB
     Dosage: 12.5 MILLIGRAM, BID
     Route: 048
     Dates: start: 20160628, end: 20160906
  5. HYDREA [Concomitant]
     Active Substance: HYDROXYUREA
     Indication: MYELOFIBROSIS
     Dosage: 2000 MG, UNK
     Route: 048
     Dates: start: 20161017, end: 20161027
  6. RANIMUSTINE [Concomitant]
     Active Substance: RANIMUSTINE
     Indication: MYELOFIBROSIS
     Dosage: 100 MG, UNK
     Route: 042
  7. BAKTAR [Concomitant]
     Active Substance: SULFAMETHOXAZOLE\TRIMETHOPRIM
     Indication: INFECTION PROPHYLAXIS
     Dosage: 1 DF, BID
     Route: 048
     Dates: end: 20161003
  8. DAUNOMYCIN [Concomitant]
     Active Substance: DAUNORUBICIN
     Indication: MYELOFIBROSIS
     Dosage: 20 MG, UNK
     Route: 042
     Dates: start: 20161018, end: 20161020
  9. RED CELLS CONCENTRATES-LEUKOCYTES REDUCED [Concomitant]
     Active Substance: HUMAN RED BLOOD CELL
     Dosage: UNK
     Route: 042
     Dates: start: 20161216
  10. JAKAVI [Suspect]
     Active Substance: RUXOLITINIB
     Indication: MYELOFIBROSIS
     Dosage: 15 MG (IN TWO DIVIDED DOSES), BID
     Route: 048
     Dates: start: 20141206
  11. JAKAVI [Suspect]
     Active Substance: RUXOLITINIB
     Dosage: 20 MG, (IN TWO DIVIDED DOSE) BID
     Route: 048
     Dates: start: 20150324, end: 20160628
  12. PREDONINE [Concomitant]
     Active Substance: PREDNISOLONE
     Indication: MYELOFIBROSIS
     Dosage: 10 MG, UNK
     Route: 048
     Dates: end: 20161017
  13. MORPHINE HYDROCHLORIDE [Concomitant]
     Active Substance: MORPHINE HYDROCHLORIDE
     Indication: MYELOFIBROSIS
     Dosage: 10 MG, UNK
     Route: 042
     Dates: start: 20161018, end: 20161028
  14. JAKAVI [Suspect]
     Active Substance: RUXOLITINIB
     Dosage: 20 MILLIGRAM, BID
     Route: 048
     Dates: start: 20161011, end: 20161020
  15. BUSULFAN. [Concomitant]
     Active Substance: BUSULFAN
     Indication: MYELOFIBROSIS
     Dosage: 2-4MG
     Route: 042
  16. JAKAVI [Suspect]
     Active Substance: RUXOLITINIB
     Dosage: 15 MILLIGRAM, BID
     Route: 048
     Dates: start: 20160906, end: 20161011
  17. EXJADE [Concomitant]
     Active Substance: DEFERASIROX
     Indication: MYELOFIBROSIS
     Dosage: 500 MG, UNK
     Route: 048

REACTIONS (4)
  - Cholelithiasis [Recovering/Resolving]
  - Myelofibrosis [Fatal]
  - Ear haemorrhage [Recovering/Resolving]
  - Auditory meatus external erosion [Unknown]

NARRATIVE: CASE EVENT DATE: 20150903
